FAERS Safety Report 9735979 (Version 2)
Quarter: 2013Q4

REPORT INFORMATION
  Report Type: Report from Study
  Country: US (occurrence: US)
  Receive Date: 20131206
  Receipt Date: 20131230
  Transmission Date: 20140711
  Serious: Yes (Death, Hospitalization)
  Sender: FDA-Public Use
  Company Number: US-ACTELION-A-NJ2013-91933

PATIENT
  Age: 17 Year
  Sex: Male

DRUGS (1)
  1. ZAVESCA [Suspect]
     Indication: NIEMANN-PICK DISEASE
     Dosage: UNK
     Route: 048
     Dates: start: 20131104, end: 201312

REACTIONS (4)
  - Niemann-Pick disease [Fatal]
  - Disease progression [Fatal]
  - Intestinal obstruction [Unknown]
  - Gastric dilatation [Unknown]
